FAERS Safety Report 9739028 (Version 2)
Quarter: 2013Q4

REPORT INFORMATION
  Report Type: Report from Study
  Country: CZ (occurrence: CZ)
  Receive Date: 20131209
  Receipt Date: 20131219
  Transmission Date: 20140711
  Serious: Yes (Death)
  Sender: FDA-Public Use
  Company Number: PHHY2013CZ142190

PATIENT
  Sex: Female

DRUGS (2)
  1. IMATINIB [Suspect]
     Dosage: UNK UKN, UNK
     Dates: start: 20121023, end: 20130409
  2. TASIGNA [Suspect]
     Dosage: UNK UKN, UNK
     Dates: start: 20120308, end: 20131002

REACTIONS (2)
  - Melaena [Fatal]
  - Neuroendocrine carcinoma [Fatal]
